FAERS Safety Report 5145106-7 (Version None)
Quarter: 2006Q4

REPORT INFORMATION
  Report Type: 
  Country: None (occurrence: None)
  Receive Date: 20061107
  Receipt Date: 20060616
  Transmission Date: 20070319
  Serious: Yes (Hospitalization)
  Sender: FDA-Public Use
  Company Number: NL-ROCHE-452146

PATIENT
  Age: 59 Year
  Sex: Male

DRUGS (12)
  1. CAPECITABINE [Suspect]
     Dosage: GIVEN ON DAY I TO 14 OF A 3 WEEK CYCLE.
     Route: 048
     Dates: start: 20060607
  2. BEVACIZUMAB [Suspect]
     Dosage: GIVEN ON DAY ONE OF A THREE WEEK CYCLE.
     Route: 042
     Dates: start: 20060607
  3. OXALIPLATIN [Suspect]
     Route: 042
     Dates: start: 20060607
  4. CETUXIMAB [Suspect]
     Route: 042
     Dates: start: 20060607
  5. MS CONTIN [Concomitant]
     Dosage: TDD: 30 MG IN THE MORNING, 30 MG AT NOON, 60 MG IN THE EVENING.
  6. DIAZEPAM [Concomitant]
  7. LACTULOSE [Concomitant]
  8. METOCLOPRAMIDE [Concomitant]
  9. MOVICOX [Concomitant]
  10. DEXAMETHASONE [Concomitant]
  11. PANTOZOL [Concomitant]
     Dosage: DOSAGE REPORTED AS 40 MG.
  12. NYSTATINE [Concomitant]

REACTIONS (7)
  - ANGINA PECTORIS [None]
  - DIARRHOEA [None]
  - HYPERTENSION [None]
  - MYOCARDIAL ISCHAEMIA [None]
  - NAUSEA [None]
  - OESOPHAGITIS [None]
  - VOMITING [None]
